FAERS Safety Report 6285980-4 (Version None)
Quarter: 2009Q3

REPORT INFORMATION
  Report Type: 
  Country: None (occurrence: None)
  Receive Date: 20090728
  Receipt Date: 20090721
  Transmission Date: 20100115
  Serious: Yes (Other)
  Sender: FDA-Public Use
  Company Number: US-JNJFOC-20061006073

PATIENT
  Sex: Male
  Weight: 72.58 kg

DRUGS (2)
  1. RISPERDAL [Suspect]
     Indication: SCHIZOAFFECTIVE DISORDER
  2. PAXIL [Concomitant]

REACTIONS (6)
  - BLOOD TRIGLYCERIDES INCREASED [None]
  - DIABETES MELLITUS [None]
  - DIABETIC RETINOPATHY [None]
  - ERECTILE DYSFUNCTION [None]
  - NEUROPATHY PERIPHERAL [None]
  - WEIGHT INCREASED [None]
